FAERS Safety Report 8818171 (Version 1)
Quarter: 2012Q4

REPORT INFORMATION
  Report Type: 
  Country: FR (occurrence: FR)
  Receive Date: 20121001
  Receipt Date: 20121001
  Transmission Date: 20130627
  Serious: Yes (Death, Life-Threatening, Hospitalization)
  Sender: FDA-Public Use
  Company Number: FR-ASTRAZENECA-2012SE74912

PATIENT
  Age: 89 Year
  Sex: Female

DRUGS (7)
  1. MOPRAL [Suspect]
     Route: 048
     Dates: start: 20120827, end: 20120903
  2. ZYLORIC [Suspect]
     Route: 048
     Dates: start: 201207
  3. TAVANIC [Suspect]
     Route: 048
     Dates: start: 20120827, end: 20120903
  4. TRIMEBUTINE [Suspect]
     Route: 048
     Dates: start: 20120827, end: 20120903
  5. COLCHICINE [Concomitant]
     Indication: GOUT
     Route: 048
     Dates: start: 20120803, end: 20120807
  6. PLAVIX [Concomitant]
  7. ACEBUTOLOL [Concomitant]

REACTIONS (1)
  - Drug reaction with eosinophilia and systemic symptoms [Fatal]
